FAERS Safety Report 4850319-5 (Version None)
Quarter: 2005Q4

REPORT INFORMATION
  Report Type: 
  Country: None (occurrence: None)
  Receive Date: 20051123
  Receipt Date: 20050801
  Transmission Date: 20060501
  Serious: No
  Sender: FDA-Public Use
  Company Number: 216701

PATIENT
  Age: 25 Year
  Sex: Female

DRUGS (1)
  1. RAPTIVA [Suspect]
     Indication: PSORIASIS
     Dosage: 0.6 ML, 1/WEEK; 0.8ML, 1/WEEK
     Dates: start: 20040811

REACTIONS (1)
  - DRUG EXPOSURE DURING PREGNANCY [None]
